FAERS Safety Report 22193203 (Version 4)
Quarter: 2023Q2

REPORT INFORMATION
  Report Type: Spontaneous
  Country: ID (occurrence: ID)
  Receive Date: 20230410
  Receipt Date: 20230518
  Transmission Date: 20230721
  Serious: Yes (Other)
  Sender: FDA-Public Use
  Company Number: ID-VER-202300001

PATIENT
  Age: 28 Year
  Sex: Female

DRUGS (1)
  1. TRIPTORELIN PAMOATE [Suspect]
     Active Substance: TRIPTORELIN PAMOATE
     Indication: In vitro fertilisation
     Route: 030

REACTIONS (1)
  - Ovarian cyst [Unknown]
